FAERS Safety Report 14407055 (Version 4)
Quarter: 2018Q2

REPORT INFORMATION
  Report Type: Spontaneous
  Country: JP (occurrence: JP)
  Receive Date: 20180118
  Receipt Date: 20180423
  Transmission Date: 20180711
  Serious: Yes (Death)
  Sender: FDA-Public Use
  Company Number: JP-PFIZER INC-2018019853

PATIENT
  Age: 27 Year
  Sex: Female

DRUGS (5)
  1. LEUCOVORIN. [Suspect]
     Active Substance: LEUCOVORIN
     Indication: COLON CANCER STAGE IV
     Dosage: 200 MG/M2, UNK (13 SESSIONS)
  2. 5-FLUOROURACIL /00098801/ [Suspect]
     Active Substance: FLUOROURACIL
     Dosage: 2400 MG/M2, DAILY (13 SESSIONS)
     Route: 042
  3. 5-FLUOROURACIL /00098801/ [Suspect]
     Active Substance: FLUOROURACIL
     Indication: COLON CANCER STAGE IV
     Dosage: 400 MG/M2, UNK (13 SESSIONS)
     Route: 042
  4. BEVACIZUMAB. [Suspect]
     Active Substance: BEVACIZUMAB
     Indication: COLON CANCER STAGE IV
     Dosage: 5 MG/KG, UNK (13 SESSIONS)
  5. OXALIPLATIN. [Suspect]
     Active Substance: OXALIPLATIN
     Indication: COLON CANCER STAGE IV
     Dosage: 85 MG/M2, UNK (13 SESSIONS)

REACTIONS (7)
  - Stoma site haemorrhage [Fatal]
  - Hepatic vein stenosis [Fatal]
  - Venoocclusive liver disease [Fatal]
  - Hepatic function abnormal [Fatal]
  - Portal hypertension [Fatal]
  - Splenomegaly [Fatal]
  - Inferior vena cava stenosis [Fatal]
